FAERS Safety Report 5248597-6 (Version None)
Quarter: 2007Q1

REPORT INFORMATION
  Report Type: 
  Country: None (occurrence: None)
  Receive Date: 20070222
  Receipt Date: 20070212
  Transmission Date: 20070707
  Serious: Yes (Hospitalization)
  Sender: FDA-Public Use
  Company Number: GXKR2007ES01247

PATIENT
  Age: 59 Year
  Sex: Female

DRUGS (3)
  1. ALPRAZOLAM [Suspect]
     Indication: ANXIETY
     Dosage: SEE IMAGE
     Route: 048
  2. PAROXETINE HCL [Suspect]
     Indication: ANXIETY
     Dosage: 20 MG, QD, ORAL
     Route: 048
  3. CLORAZEPATE DIPOTASSIUM [Concomitant]

REACTIONS (6)
  - ANGIOEDEMA [None]
  - ANXIETY [None]
  - CONDITION AGGRAVATED [None]
  - DYSTONIA [None]
  - EXTRAPYRAMIDAL DISORDER [None]
  - TONGUE DISORDER [None]
